FAERS Safety Report 26206777 (Version 1)
Quarter: 2025Q4

REPORT INFORMATION
  Report Type: Spontaneous
  Country: US (occurrence: US)
  Receive Date: 20251229
  Receipt Date: 20251229
  Transmission Date: 20260118
  Serious: Yes (Death, Other)
  Sender: RANBAXY
  Company Number: US-SUN PHARMACEUTICAL INDUSTRIES LTD-2025R1-543692

PATIENT
  Age: 57 Year
  Sex: Female

DRUGS (1)
  1. BUPROPION [Suspect]
     Active Substance: BUPROPION
     Indication: Depression
     Dosage: 12 GRAM
     Route: 048

REACTIONS (3)
  - Cardiogenic shock [Fatal]
  - Toxicity to various agents [Fatal]
  - Intentional overdose [Fatal]
